FAERS Safety Report 20361433 (Version 1)
Quarter: 2022Q1

REPORT INFORMATION
  Report Type: Spontaneous
  Country: US (occurrence: None)
  Receive Date: 20220120
  Receipt Date: 20220120
  Transmission Date: 20220423
  Serious: No
  Sender: FDA-Public Use
  Company Number: None

PATIENT
  Age: 45 Year
  Sex: Female
  Weight: 96.75 kg

DRUGS (8)
  1. PAXLOVID [Suspect]
     Active Substance: NIRMATRELVIR\RITONAVIR
     Indication: COVID-19
     Dosage: FREQUENCY : TWICE A DAY;?
     Route: 048
     Dates: start: 20220113, end: 20220118
  2. OCREVUS [Concomitant]
     Active Substance: OCRELIZUMAB
  3. LAMOTRIGINE [Concomitant]
     Active Substance: LAMOTRIGINE
  4. BUPROPION [Concomitant]
     Active Substance: BUPROPION
  5. METHYLCARBAMOL [Concomitant]
  6. PORTIA [Concomitant]
     Active Substance: ETHINYL ESTRADIOL\LEVONORGESTREL
  7. CALCIUM CARBONATE [Concomitant]
     Active Substance: CALCIUM CARBONATE
  8. ZYRTEC [Concomitant]
     Active Substance: CETIRIZINE HYDROCHLORIDE

REACTIONS (3)
  - Vertigo [None]
  - Vomiting [None]
  - Balance disorder [None]

NARRATIVE: CASE EVENT DATE: 20220119
